FAERS Safety Report 4838826-2 (Version None)
Quarter: 2005Q4

REPORT INFORMATION
  Report Type: 
  Country: None (occurrence: None)
  Receive Date: 20051123
  Receipt Date: 20051123
  Transmission Date: 20060501
  Serious: Yes (Hospitalization)
  Sender: FDA-Public Use
  Company Number: None

PATIENT
  Age: 77 Year
  Sex: Male
  Weight: 83.2 kg

DRUGS (13)
  1. WARFARIN [Suspect]
     Indication: ATRIAL FIBRILLATION
     Dosage: ORAL
     Route: 048
  2. LISINOPRIL [Concomitant]
  3. SILDENAFIL CITRATE [Concomitant]
  4. HYDROCODONE 5/ACETAMINOPHEN [Concomitant]
  5. OMEPRAZOLE [Concomitant]
  6. SUCRALFATE [Concomitant]
  7. SIMVASTATIN [Concomitant]
  8. METOPROLOL SUCCINATE [Concomitant]
  9. CYCLOBENZAPRINE HCL [Concomitant]
  10. CLONAZEPAM [Concomitant]
  11. SALSALATE [Concomitant]
  12. HYDROCORTISONE [Concomitant]
  13. OXYBUTYNIN CHLORIDE [Concomitant]

REACTIONS (1)
  - INTERNATIONAL NORMALISED RATIO INCREASED [None]
